FAERS Safety Report 18451447 (Version 1)
Quarter: 2020Q4

REPORT INFORMATION
  Report Type: Report from Study
  Country: PA (occurrence: PA)
  Receive Date: 20201102
  Receipt Date: 20201102
  Transmission Date: 20210114
  Serious: Yes (Other)
  Sender: FDA-Public Use
  Company Number: NVSC2020PA115697

PATIENT
  Age: 57 Year
  Sex: Female

DRUGS (1)
  1. EXFORGE [Suspect]
     Active Substance: AMLODIPINE BESYLATE\VALSARTAN
     Indication: PRODUCT USED FOR UNKNOWN INDICATION
     Dosage: 2 DF, BID AMLODIPINE 5MG/VALSARTAN 320MG
     Route: 065
     Dates: start: 201912, end: 201912

REACTIONS (3)
  - Off label use [Unknown]
  - Headache [Unknown]
  - Diabetes mellitus [Unknown]
